FAERS Safety Report 7045705-1 (Version None)
Quarter: 2010Q4

REPORT INFORMATION
  Report Type: 
  Country: None (occurrence: None)
  Receive Date: 20101014
  Receipt Date: 20101006
  Transmission Date: 20110411
  Serious: Yes (Hospitalization)
  Sender: FDA-Public Use
  Company Number: JP-BRISTOL-MYERS SQUIBB COMPANY-15329683

PATIENT
  Age: 51 Year
  Sex: Male

DRUGS (2)
  1. KENACORT [Suspect]
     Indication: OTITIS MEDIA
     Dosage: INTRATYMPHANIC
  2. PREDNISOLONE [Suspect]
     Indication: OTITIS MEDIA
     Route: 048

REACTIONS (1)
  - DIABETES MELLITUS [None]
